FAERS Safety Report 12238224 (Version 1)
Quarter: 2016Q2

REPORT INFORMATION
  Report Type: Spontaneous
  Country: US (occurrence: None)
  Receive Date: 20160404
  Receipt Date: 20160404
  Transmission Date: 20160815
  Serious: No
  Sender: FDA-Public Use
  Company Number: None

PATIENT
  Age: 56 Year
  Sex: Female
  Weight: 57.61 kg

DRUGS (1)
  1. PROGESTERONE 100MG [Suspect]
     Active Substance: PROGESTERONE
     Indication: MENOPAUSE
     Route: 048
     Dates: start: 20151006

REACTIONS (1)
  - Constipation [None]

NARRATIVE: CASE EVENT DATE: 20151006
